FAERS Safety Report 16536435 (Version 2)
Quarter: 2019Q3

REPORT INFORMATION
  Report Type: Spontaneous
  Country: DE (occurrence: DE)
  Receive Date: 20190706
  Receipt Date: 20190910
  Transmission Date: 20191004
  Serious: Yes (Congenital Anomaly, Other)
  Sender: FDA-Public Use
  Company Number: DE-AUROBINDO-AUR-APL-2019-037625

PATIENT

DRUGS (4)
  1. LEVETIRACETAM. [Suspect]
     Active Substance: LEVETIRACETAM
     Indication: EPILEPSY
     Dosage: 2000 MILLIGRAM, ONCE A DAY (1000 MG, 2X/DAY (BID))
     Route: 064
     Dates: start: 201601, end: 20160210
  2. LEVETIRACETAM. [Suspect]
     Active Substance: LEVETIRACETAM
     Dosage: 1250 MILLIGRAM, DAILY
     Route: 064
     Dates: start: 20160211, end: 20161003
  3. OSPOLOT [Suspect]
     Active Substance: SULTHIAME
     Indication: EPILEPSY
     Dosage: 300 MILLIGRAM, ONCE A DAY (150 MG, 2X/DAY (BID))
     Route: 064
     Dates: start: 201601, end: 20161003
  4. BELLA HEXAL [Concomitant]
     Active Substance: CYPROTERONE ACETATE\ETHINYL ESTRADIOL
     Indication: CONTRACEPTION
     Dosage: 2 MILLIGRAM, ONCE A DAY, 1(TRIMESTER),0- 3.5. GESTATIONAL WEEK
     Route: 064
     Dates: start: 201601, end: 20160204

REACTIONS (3)
  - Congenital cyst [Not Recovered/Not Resolved]
  - Maternal exposure during pregnancy [Unknown]
  - Small for dates baby [Unknown]

NARRATIVE: CASE EVENT DATE: 2016
